FAERS Safety Report 4975069-6 (Version None)
Quarter: 2006Q2

REPORT INFORMATION
  Report Type: 
  Country: None (occurrence: None)
  Receive Date: 20060414
  Receipt Date: 20060414
  Transmission Date: 20061013
  Serious: Yes (Hospitalization)
  Sender: FDA-Public Use
  Company Number: None

PATIENT
  Age: 80 Year
  Sex: Female

DRUGS (2)
  1. PLAVIX [Suspect]
     Dosage: 75MG ONCE DAILY PO
     Route: 048
  2. ECOTRIN 81MG [Suspect]
     Dosage: 81 MG ONCE DAILY PO
     Route: 048

REACTIONS (3)
  - FALL [None]
  - HEAD INJURY [None]
  - SUBDURAL HAEMATOMA [None]
